FAERS Safety Report 13337022 (Version 3)
Quarter: 2017Q2

REPORT INFORMATION
  Report Type: Spontaneous
  Country: US (occurrence: US)
  Receive Date: 20170315
  Receipt Date: 20170619
  Transmission Date: 20170830
  Serious: No
  Sender: FDA-Public Use
  Company Number: US-PFIZER INC-2017110609

PATIENT
  Age: 88 Year
  Sex: Female
  Weight: 78.96 kg

DRUGS (7)
  1. VITAMIN C [Concomitant]
     Active Substance: ASCORBIC ACID
     Dosage: UNK
  2. LYRICA [Suspect]
     Active Substance: PREGABALIN
     Indication: NEURALGIA
     Dosage: UNK
     Route: 048
  3. LYRICA [Suspect]
     Active Substance: PREGABALIN
     Indication: PAIN IN EXTREMITY
     Dosage: 60 MG, 2X/DAY (120 PILLS FOR TWO MONTHS)
  4. VITAMIN D [Concomitant]
     Active Substance: CHOLECALCIFEROL
     Dosage: UNK
  5. LISINOPRIL. [Concomitant]
     Active Substance: LISINOPRIL
     Indication: BLOOD PRESSURE ABNORMAL
     Dosage: UNK
  6. LYRICA [Suspect]
     Active Substance: PREGABALIN
     Dosage: 100 MG, 2X/DAY
  7. LYRICA [Suspect]
     Active Substance: PREGABALIN
     Indication: BURNING SENSATION
     Dosage: 200 MG (2 CAPSULES OF 100 MG), 2X/DAY
     Route: 048

REACTIONS (8)
  - Drug ineffective [Unknown]
  - Burning sensation [Unknown]
  - Headache [Unknown]
  - Insomnia [Unknown]
  - Middle insomnia [Unknown]
  - Neck pain [Unknown]
  - Impulsive behaviour [Unknown]
  - Condition aggravated [Unknown]
